FAERS Safety Report 14093963 (Version 2)
Quarter: 2018Q1

REPORT INFORMATION
  Report Type: Spontaneous
  Country: IT (occurrence: IT)
  Receive Date: 20171016
  Receipt Date: 20180314
  Transmission Date: 20180508
  Serious: Yes (Hospitalization, Other)
  Sender: FDA-Public Use
  Company Number: IT-BAYER-2017-191615

PATIENT
  Age: 44 Year
  Sex: Male
  Weight: 80 kg

DRUGS (9)
  1. TACHIPIRINA [Suspect]
     Active Substance: ACETAMINOPHEN
     Indication: INTENTIONAL SELF-INJURY
     Dosage: 20 G, ONCE
     Route: 048
     Dates: start: 20170917, end: 20170917
  2. MACLADIN [Suspect]
     Active Substance: CLARITHROMYCIN
     Indication: INTENTIONAL SELF-INJURY
     Dosage: (UNSPECIFIED DOSE)ONCE
     Route: 048
     Dates: start: 20170917, end: 20170917
  3. TACHIDOL [Suspect]
     Active Substance: ACETAMINOPHEN\CODEINE PHOSPHATE
     Indication: INTENTIONAL SELF-INJURY
     Dosage: 8 DF, ONCE
     Route: 048
     Dates: start: 20170917, end: 20170917
  4. BRUFEN [Suspect]
     Active Substance: IBUPROFEN
     Indication: INTENTIONAL SELF-INJURY
     Dosage: (UNSPECIFIED DOSE)
     Route: 048
     Dates: start: 20170917, end: 20170917
  5. ZANTIPRES [Suspect]
     Active Substance: ZOFENOPRIL
     Dosage: 28 DF, ONCE
     Route: 048
     Dates: start: 20170917, end: 20170917
  6. CEFIXORAL [Suspect]
     Active Substance: CEFIXIME
     Indication: INTENTIONAL SELF-INJURY
     Dosage: (UNSPECIFIED DOSE)
     Route: 048
     Dates: start: 20170917, end: 20170917
  7. LASONIL ANTINFIAMMATORIO E ANTIREUMATICO 220 MG [Suspect]
     Active Substance: NAPROXEN SODIUM
     Indication: INTENTIONAL SELF-INJURY
     Dosage: UNK
     Route: 048
     Dates: start: 20170917, end: 20170917
  8. UNIXIME [Suspect]
     Active Substance: CEFIXIME
     Indication: INTENTIONAL SELF-INJURY
     Dosage: (UNSPECIFIED DOSE)
     Route: 048
     Dates: start: 20170917, end: 20170917
  9. ACTIGRIP [Suspect]
     Active Substance: ACETAMINOPHEN\PSEUDOEPHEDRINE HYDROCHLORIDE\TRIPROLIDINE HYDROCHLORIDE
     Indication: INTENTIONAL SELF-INJURY
     Dosage: UNSPECIFIED NUMBER OF TABLET  ONCE
     Route: 048
     Dates: start: 20170917, end: 20170917

REACTIONS (6)
  - Intentional self-injury [Unknown]
  - Tachycardia [Unknown]
  - Vomiting [Unknown]
  - Drug use disorder [Unknown]
  - Sluggishness [Unknown]
  - Drug abuse [None]

NARRATIVE: CASE EVENT DATE: 20170917
